FAERS Safety Report 8275731-6 (Version None)
Quarter: 2012Q2

REPORT INFORMATION
  Report Type: 
  Country: None (occurrence: None)
  Receive Date: 20120412
  Receipt Date: 20120331
  Transmission Date: 20120825
  Serious: Yes (Other)
  Sender: FDA-Public Use
  Company Number: US-PAR PHARMACEUTICAL, INC-2012SCPR004313

PATIENT

DRUGS (5)
  1. ALPRAZOLAM [Suspect]
     Indication: INSOMNIA
  2. ZOLPIDEM TARTRATE [Suspect]
     Indication: INSOMNIA
  3. LAMICTAL [Concomitant]
     Indication: PRODUCT USED FOR UNKNOWN INDICATION
     Dosage: UNK UNK, UNKNOWN
     Route: 065
  4. ZOLPIDEM TARTRATE [Suspect]
     Indication: PANIC ATTACK
     Dosage: 2 PILLS, SINGLE
     Route: 048
  5. ALPRAZOLAM [Suspect]
     Indication: PANIC ATTACK
     Dosage: 2 DF, SINGLE
     Route: 048

REACTIONS (2)
  - INCORRECT DOSE ADMINISTERED [None]
  - SOMNAMBULISM [None]
